FAERS Safety Report 6964805-5 (Version None)
Quarter: 2010Q3

REPORT INFORMATION
  Report Type: 
  Country: None (occurrence: None)
  Receive Date: 20100903
  Receipt Date: 20100826
  Transmission Date: 20110219
  Serious: Yes (Hospitalization)
  Sender: FDA-Public Use
  Company Number: JP-JNJFOC-20100305465

PATIENT
  Sex: Female
  Weight: 48 kg

DRUGS (8)
  1. REMICADE [Suspect]
     Indication: RHEUMATOID ARTHRITIS
     Route: 042
  2. REMICADE [Suspect]
     Route: 042
  3. REMICADE [Suspect]
     Dosage: 2 INFUSIONS ON UNSPECIFIED DATES
     Route: 042
  4. RHEUMATREX [Suspect]
     Indication: RHEUMATOID ARTHRITIS
     Route: 048
  5. PREDOHAN [Suspect]
     Indication: RHEUMATOID ARTHRITIS
     Route: 048
  6. PREDOHAN [Suspect]
     Route: 048
  7. CELECOX [Concomitant]
     Indication: RHEUMATOID ARTHRITIS
     Route: 048
  8. PREDOHAN [Concomitant]
     Route: 048

REACTIONS (5)
  - ADRENAL INSUFFICIENCY [None]
  - BLOOD BETA-D-GLUCAN INCREASED [None]
  - DEHYDRATION [None]
  - INFLUENZA [None]
  - PNEUMONIA [None]
